FAERS Safety Report 9009719 (Version 2)
Quarter: 2013Q1

REPORT INFORMATION
  Report Type: Spontaneous
  Country: BR (occurrence: BR)
  Receive Date: 20130110
  Receipt Date: 20130307
  Transmission Date: 20140127
  Serious: Yes (Hospitalization)
  Sender: FDA-Public Use
  Company Number: BR-BAYER-2012-135681

PATIENT
  Age: 78 Year
  Sex: Female
  Weight: 87.21 kg

DRUGS (11)
  1. NAPROXEN SODIUM ({= 220 MG) [Suspect]
     Indication: OSTEOARTHRITIS
     Dosage: UNK
     Dates: start: 20101029, end: 20120916
  2. NEXIUM [Concomitant]
     Indication: HYPERTENSION
     Dosage: 40 MG, UNK
  3. AMLODIPINE [Concomitant]
     Indication: HYPERTENSION
     Dosage: UNK
     Dates: start: 2000
  4. ENALAPRIL [Concomitant]
     Indication: HYPERTENSION
     Dosage: UNK
     Dates: start: 2000
  5. ATENOLOL [Concomitant]
     Indication: HYPERTENSION
     Dosage: UNK
     Dates: start: 2000
  6. CAPTOPRIL [Concomitant]
     Indication: HYPERTENSION
     Dosage: UNK
     Dates: start: 20101023
  7. METFORMIN [Concomitant]
     Indication: DIABETES MELLITUS
     Dosage: UNK
     Dates: start: 2002
  8. DAONIL [Concomitant]
     Indication: DIABETES MELLITUS
     Dosage: UNK
     Dates: start: 2002
  9. NPH INSULIN [Concomitant]
     Indication: DIABETES MELLITUS
     Dosage: UNK
     Dates: start: 20101122
  10. FUROSEMIDE [Concomitant]
     Indication: CARDIAC FAILURE
     Dosage: UNK
     Dates: start: 2002
  11. PARACETAMOL [Concomitant]
     Indication: OSTEOARTHRITIS
     Dosage: UNK
     Dates: start: 20110226

REACTIONS (4)
  - Myocardial infarction [Recovered/Resolved]
  - Non-cardiac chest pain [None]
  - Pain in extremity [None]
  - Back pain [None]
